FAERS Safety Report 6806797-5 (Version None)
Quarter: 2010Q2

REPORT INFORMATION
  Report Type: 
  Country: None (occurrence: None)
  Receive Date: 20100629
  Receipt Date: 20080513
  Transmission Date: 20101027
  Serious: No
  Sender: FDA-Public Use
  Company Number: US-PFIZER INC-2008030542

PATIENT
  Sex: Male
  Weight: 90.909 kg

DRUGS (1)
  1. CARDURA [Suspect]
     Indication: PROSTATOMEGALY

REACTIONS (2)
  - DRUG EFFECT DECREASED [None]
  - FLATULENCE [None]
